FAERS Safety Report 15715445 (Version 4)
Quarter: 2019Q1

REPORT INFORMATION
  Report Type: Report from Study
  Country: US (occurrence: US)
  Receive Date: 20181212
  Receipt Date: 20190305
  Transmission Date: 20190417
  Serious: Yes (Hospitalization)
  Sender: FDA-Public Use
  Company Number: US-ACTELION-A-NJ2018-171996

PATIENT
  Age: 68 Year
  Sex: Male

DRUGS (15)
  1. LIPITOR [Concomitant]
     Active Substance: ATORVASTATIN CALCIUM
     Indication: HYPERTRIGLYCERIDAEMIA
     Dosage: 40 MG, UNK
     Dates: start: 201612
  2. SILDENAFIL. [Concomitant]
     Active Substance: SILDENAFIL
     Indication: PULMONARY HYPERTENSION
     Dosage: 20 MG, UNK
     Dates: start: 20171214
  3. SALINE [Concomitant]
     Active Substance: SODIUM CHLORIDE
     Indication: NASAL CONGESTION
     Dosage: 0.65 %, UNK
     Route: 045
     Dates: start: 2017
  4. FUROSEMIDE. [Concomitant]
     Active Substance: FUROSEMIDE
     Indication: PULMONARY HYPERTENSION
     Dosage: 20 MG, UNK
     Dates: start: 201711
  5. ASPIRIN. [Concomitant]
     Active Substance: ASPIRIN
     Indication: CORONARY ARTERY DISEASE
     Dosage: 81 MG, UNK
  6. ALBUTEROL. [Concomitant]
     Active Substance: ALBUTEROL
  7. CARVEDILOL. [Concomitant]
     Active Substance: CARVEDILOL
     Indication: HYPERTENSION
     Dosage: 6.25 MG, UNK
     Dates: start: 201709
  8. OMEPRAZOLE. [Concomitant]
     Active Substance: OMEPRAZOLE
     Dosage: 20 MG, UNK
  9. UPTRAVI [Suspect]
     Active Substance: SELEXIPAG
     Indication: PULMONARY ARTERIAL HYPERTENSION
     Dosage: UNK
     Route: 048
     Dates: start: 20180606, end: 20180914
  10. UMECLIDINIUM BROMIDE [Concomitant]
     Active Substance: UMECLIDINIUM BROMIDE
  11. OPSUMIT [Suspect]
     Active Substance: MACITENTAN
     Indication: PULMONARY ARTERIAL HYPERTENSION
     Dosage: UNK
     Route: 048
     Dates: start: 20180129
  12. ZYLOPRIM [Concomitant]
     Active Substance: ALLOPURINOL
     Indication: GOUT
     Dosage: 100 MG, UNK
     Route: 048
     Dates: start: 201709
  13. FLUTICASONE. [Concomitant]
     Active Substance: FLUTICASONE
     Dosage: UNK
     Route: 045
     Dates: start: 201612
  14. CHOLECALCIFEROL [Concomitant]
     Active Substance: CHOLECALCIFEROL
     Dosage: 2000 U, UNK
  15. TREPROSTINIL. [Concomitant]
     Active Substance: TREPROSTINIL
     Indication: PULMONARY HYPERTENSION
     Dosage: UNK
     Dates: start: 20180914

REACTIONS (18)
  - Chest pain [Unknown]
  - Back pain [Unknown]
  - Hypoxia [Unknown]
  - Dyspnoea [Unknown]
  - Blood bilirubin increased [Unknown]
  - Sinus congestion [Unknown]
  - Myalgia [Unknown]
  - Fatigue [Unknown]
  - Lipase increased [Recovered/Resolved]
  - Cholelithiasis [Not Recovered/Not Resolved]
  - Aspartate aminotransferase increased [Unknown]
  - Pain [Unknown]
  - Pain in extremity [Unknown]
  - Bilirubin conjugated increased [Unknown]
  - Neck pain [Unknown]
  - Decreased appetite [Unknown]
  - Malaise [Unknown]
  - Headache [Unknown]

NARRATIVE: CASE EVENT DATE: 2018
